FAERS Safety Report 7807577-4 (Version None)
Quarter: 2011Q4

REPORT INFORMATION
  Report Type: 
  Country: None (occurrence: None)
  Receive Date: 20111011
  Receipt Date: 20100930
  Transmission Date: 20120403
  Serious: Yes (Other)
  Sender: FDA-Public Use
  Company Number: US-PURDUE-USA-2010-0051903

PATIENT
  Sex: Female
  Weight: 122.45 kg

DRUGS (14)
  1. OXYCONTIN [Suspect]
     Dosage: 20 MG, TID
     Route: 048
  2. OXYCONTIN [Suspect]
     Dosage: 80 MG, TID
     Route: 048
  3. PERCOCET [Concomitant]
     Indication: BREAKTHROUGH PAIN
     Dosage: 10/325 MG, UNK
  4. VALIUM [Concomitant]
  5. SINGULAIR [Concomitant]
     Indication: SARCOIDOSIS
  6. TOPAMAX [Concomitant]
  7. LEXAPRO [Concomitant]
     Indication: DEPRESSION
  8. SINGULAIR [Concomitant]
     Indication: HYPERSENSITIVITY
  9. VENTOLIN [Concomitant]
  10. OXYCONTIN [Suspect]
     Dosage: 40 MG, UNK
     Route: 048
  11. RISPERDAL [Concomitant]
     Indication: BIPOLAR DISORDER
  12. OXYCONTIN [Suspect]
     Indication: BACK PAIN
     Dosage: 60 MG, UNK
     Route: 048
  13. SINGULAIR [Concomitant]
     Indication: ASTHMA
  14. SYNTHROID [Concomitant]
     Dosage: UNK

REACTIONS (4)
  - DRUG INEFFECTIVE [None]
  - FIBROMYALGIA [None]
  - SURGERY [None]
  - CARPAL TUNNEL DECOMPRESSION [None]
